FAERS Safety Report 4631134-4 (Version None)
Quarter: 2005Q2

REPORT INFORMATION
  Report Type: 
  Country: None (occurrence: None)
  Receive Date: 20050407
  Receipt Date: 20050407
  Transmission Date: 20051028
  Serious: Yes (Hospitalization)
  Sender: FDA-Public Use
  Company Number: None

PATIENT
  Age: 54 Year
  Sex: Male
  Weight: 72 kg

DRUGS (1)
  1. HALOPERIDOL [Suspect]
     Indication: DEMENTIA
     Dosage: 2MG  X2 DOSES   INTRAMUSCU
     Route: 030
     Dates: start: 20050317, end: 20050317

REACTIONS (3)
  - NEUROLEPTIC MALIGNANT SYNDROME [None]
  - SALIVARY HYPERSECRETION [None]
  - TACHYCARDIA [None]
